FAERS Safety Report 4919313-X (Version None)
Quarter: 2006Q1

REPORT INFORMATION
  Report Type: 
  Country: None (occurrence: None)
  Receive Date: 20060113
  Receipt Date: 20051207
  Transmission Date: 20060701
  Serious: No
  Sender: FDA-Public Use
  Company Number: 2005SP004318

PATIENT
  Age: 50 Year
  Sex: Female
  Weight: 119.7496 kg

DRUGS (3)
  1. LUNESTA [Suspect]
     Indication: INITIAL INSOMNIA
     Dosage: 6 MG; BID; ORAL;  3 MG; HS; ORAL
     Route: 048
     Dates: start: 20051116, end: 20051123
  2. LUNESTA [Suspect]
     Indication: INITIAL INSOMNIA
     Dosage: 6 MG; BID; ORAL;  3 MG; HS; ORAL
     Route: 048
     Dates: start: 20051124, end: 20051203
  3. AMBIEN [Concomitant]

REACTIONS (5)
  - DRUG INEFFECTIVE [None]
  - DYSGEUSIA [None]
  - GLOSSITIS [None]
  - HEADACHE [None]
  - INSOMNIA [None]
